FAERS Safety Report 21066153 (Version 2)
Quarter: 2022Q4

REPORT INFORMATION
  Report Type: Spontaneous
  Country: US (occurrence: US)
  Receive Date: 20220711
  Receipt Date: 20221005
  Transmission Date: 20230113
  Serious: No
  Sender: FDA-Public Use
  Company Number: US-INTRA-CELLULAR THERAPIES, INC.-2022ICT00572

PATIENT
  Sex: Female
  Weight: 85.261 kg

DRUGS (10)
  1. CAPLYTA [Suspect]
     Active Substance: LUMATEPERONE
     Indication: Bipolar I disorder
     Dosage: 42 MG, 1X/DAY AT BEDTIME
     Route: 048
     Dates: start: 20220405, end: 20220524
  2. LAMOTRIGINE [Concomitant]
     Active Substance: LAMOTRIGINE
     Dosage: 200 MG, 2X/DAY
     Route: 048
  3. EFFEXOR [Concomitant]
     Active Substance: VENLAFAXINE HYDROCHLORIDE
  4. VENALFAXINE EXTENDED RELEASE [Concomitant]
     Dosage: 75 MG, 1X/DAY
     Route: 048
  5. PROPRANOLOL [Concomitant]
     Active Substance: PROPRANOLOL HYDROCHLORIDE
     Dosage: 40 MG, UP TO 3X/DAY AS NEEDED
  6. TEMAZEPAM [Concomitant]
     Active Substance: TEMAZEPAM
     Dosage: 15 MG, 1X/DAY AT BEDTIME
     Route: 048
  7. GABAPENTIN [Concomitant]
     Active Substance: GABAPENTIN
     Dosage: 300 MG, 4X/DAY AS NEEDED
     Route: 048
  8. HYDROXYZINE PAMOATE [Concomitant]
     Active Substance: HYDROXYZINE PAMOATE
     Dosage: 50 MG, 1X/DAY AT BEDTIME
  9. OMEPRAZOLE DELAYED RELAESE/ ENTERIC COATED [Concomitant]
     Dosage: 40 MG, 1X/DAY
     Route: 048
  10. LORAZEPAM [Concomitant]
     Active Substance: LORAZEPAM

REACTIONS (6)
  - Balance disorder [Recovered/Resolved]
  - Motion sickness [Recovered/Resolved]
  - Contusion [Recovered/Resolved]
  - Vestibular migraine [Recovered/Resolved]
  - Anxiety [Recovered/Resolved]
  - Dizziness [Recovered/Resolved]

NARRATIVE: CASE EVENT DATE: 20220101
